FAERS Safety Report 5631397-2 (Version None)
Quarter: 2008Q1

REPORT INFORMATION
  Report Type: 
  Country: None (occurrence: None)
  Receive Date: 20080212
  Receipt Date: 20070821
  Transmission Date: 20080703
  Serious: Yes (Life-Threatening, Hospitalization)
  Sender: FDA-Public Use
  Company Number: 2007SP014052

PATIENT
  Age: 50 Year
  Sex: Male
  Weight: 78.4723 kg

DRUGS (8)
  1. PEG-INTRON [Suspect]
     Indication: HEPATITIS C
     Dosage: 150 MCG; QW; SC
     Route: 058
     Dates: start: 20070320, end: 20070705
  2. RIBAVIRIN [Suspect]
     Indication: HEPATITIS C
     Dosage: 1200 MG; QD; PO
     Route: 048
     Dates: start: 20070320, end: 20070705
  3. CITALOPRAM HYDROBROMIDE [Concomitant]
  4. DIPHENHYDRAMINE HCL [Concomitant]
  5. IBUPROFEN [Concomitant]
  6. OMEPRAZOLE [Concomitant]
  7. TRAZODONE HCL [Concomitant]
  8. VARDENAFIL [Concomitant]

REACTIONS (3)
  - ANAEMIA [None]
  - BACK PAIN [None]
  - PULMONARY EMBOLISM [None]
